FAERS Safety Report 7309928-6 (Version None)
Quarter: 2011Q1

REPORT INFORMATION
  Report Type: 
  Country: None (occurrence: None)
  Receive Date: 20110210
  Receipt Date: 20110203
  Transmission Date: 20110831
  Serious: Yes (Death)
  Sender: FDA-Public Use
  Company Number: 2011SP005327

PATIENT

DRUGS (3)
  1. THALIDOMIDE [Suspect]
     Indication: PRODUCT USED FOR UNKNOWN INDICATION
  2. TEMOZOLOMIDE [Suspect]
     Indication: NEOPLASM MALIGNANT
     Dosage: (75 MG/M2; QD) (75 MG/M2; QD)
     Dates: start: 20050401
  3. TEMOZOLOMIDE [Suspect]
     Indication: NEOPLASM MALIGNANT
     Dosage: (75 MG/M2; QD) (75 MG/M2; QD)
     Dates: start: 20050501

REACTIONS (2)
  - HEADACHE [None]
  - DIZZINESS [None]
